FAERS Safety Report 19354034 (Version 1)
Quarter: 2021Q2

REPORT INFORMATION
  Report Type: Report from Study
  Country: IT (occurrence: IT)
  Receive Date: 20210602
  Receipt Date: 20210602
  Transmission Date: 20210717
  Serious: Yes (Other)
  Sender: FDA-Public Use
  Company Number: IT-SUN PHARMACEUTICAL INDUSTRIES LTD-2021R1-298681

PATIENT
  Age: 43 Year
  Sex: Male

DRUGS (1)
  1. DEXAMETHASONE. [Suspect]
     Active Substance: DEXAMETHASONE
     Indication: ANAPLASTIC ASTROCYTOMA
     Dosage: 16 MILLIGRAM/UNK
     Route: 065

REACTIONS (2)
  - Interstitial lung disease [Not Recovered/Not Resolved]
  - SARS-CoV-2 test positive [Unknown]
